FAERS Safety Report 6474326-4 (Version None)
Quarter: 2009Q4

REPORT INFORMATION
  Report Type: 
  Country: None (occurrence: None)
  Receive Date: 20091204
  Receipt Date: 20091125
  Transmission Date: 20100525
  Serious: Yes (Other)
  Sender: FDA-Public Use
  Company Number: GXKR2009SE12948

PATIENT
  Sex: Female

DRUGS (1)
  1. SIMVASTATIN SANDOZ (NGX) [Suspect]
     Dosage: UNK
     Route: 048
     Dates: end: 20081205

REACTIONS (1)
  - DIABETES MELLITUS [None]
